FAERS Safety Report 4367379-0 (Version None)
Quarter: 2004Q2

REPORT INFORMATION
  Report Type: 
  Country: None (occurrence: None)
  Receive Date: 20040521
  Receipt Date: 20030904
  Transmission Date: 20050107
  Serious: Yes (Disabling, Other)
  Sender: FDA-Public Use
  Company Number: PHEH2003US05570

PATIENT
  Age: 79 Year
  Sex: Female
  Weight: 66.2 kg

DRUGS (4)
  1. TEGRETOL-XR [Suspect]
     Indication: TRIGEMINAL NEURALGIA
     Dosage: SEE IMAGE
     Route: 048
     Dates: start: 20020529, end: 20020619
  2. TEGRETOL-XR [Suspect]
     Indication: TRIGEMINAL NEURALGIA
     Dosage: SEE IMAGE
     Route: 048
     Dates: start: 20030403
  3. TEGRETOL [Suspect]
     Indication: TRIGEMINAL NEURALGIA
     Dosage: 200 MG, BID, UNK
     Dates: start: 20020620, end: 20030402
  4. . [Concomitant]

REACTIONS (7)
  - ATONIC URINARY BLADDER [None]
  - CULTURE URINE POSITIVE [None]
  - DYSURIA [None]
  - POLLAKIURIA [None]
  - URINARY RETENTION [None]
  - URINARY TRACT INFECTION [None]
  - URINE FLOW DECREASED [None]
